FAERS Safety Report 8350956-X (Version None)
Quarter: 2012Q2

REPORT INFORMATION
  Report Type: 
  Country: None (occurrence: None)
  Receive Date: 20120510
  Receipt Date: 20120426
  Transmission Date: 20120825
  Serious: Yes (Other)
  Sender: FDA-Public Use
  Company Number: JP-ELI_LILLY_AND_COMPANY-JP201205000028

PATIENT
  Age: 75 Year
  Sex: Female

DRUGS (5)
  1. BAZEDOXIFENE ACETATE [Concomitant]
     Dosage: UNK
  2. NICORANDIL [Concomitant]
     Dosage: UNK
  3. ENALAPRIL MALEATE [Concomitant]
     Dosage: UNK
  4. CYMBALTA [Suspect]
     Indication: DEPRESSION
     Dosage: 20 MG, QD
     Route: 048
     Dates: start: 20120417, end: 20120425
  5. GLIMEPIRIDE [Concomitant]
     Dosage: UNK

REACTIONS (3)
  - SWELLING FACE [None]
  - ERYTHEMA [None]
  - RASH [None]
